FAERS Safety Report 8208464-2 (Version None)
Quarter: 2012Q1

REPORT INFORMATION
  Report Type: 
  Country: None (occurrence: None)
  Receive Date: 20120227
  Receipt Date: 20111118
  Transmission Date: 20120608
  Serious: No
  Sender: FDA-Public Use
  Company Number: 339770

PATIENT
  Age: 44 Year
  Sex: Female

DRUGS (1)
  1. VICTOZA [Suspect]
     Indication: TYPE 2 DIABETES MELLITUS
     Dosage: UNK, SUBCUTANEOUS
     Route: 058

REACTIONS (5)
  - DIARRHOEA [None]
  - ERUCTATION [None]
  - INJECTION SITE HAEMORRHAGE [None]
  - MALAISE [None]
  - MENSTRUAL DISORDER [None]
